FAERS Safety Report 17263296 (Version 1)
Quarter: 2020Q1

REPORT INFORMATION
  Report Type: Spontaneous
  Country: US (occurrence: US)
  Receive Date: 20200113
  Receipt Date: 20200113
  Transmission Date: 20200409
  Serious: No
  Sender: FDA-Public Use
  Company Number: US-SIGMAPHARM LABORATORIES, LLC-2019SIG00017

PATIENT
  Age: 82 Year
  Sex: Female
  Weight: 58.96 kg

DRUGS (3)
  1. RANEXA [Concomitant]
     Active Substance: RANOLAZINE
     Dosage: UNK, AS NEEDED
  2. SYNTHROID [Concomitant]
     Active Substance: LEVOTHYROXINE SODIUM
     Dosage: 50 MCG, 1X/DAY
  3. LIOTHYRONINE SODIUM. [Suspect]
     Active Substance: LIOTHYRONINE SODIUM
     Indication: THYROID OPERATION
     Dosage: 12.5 MCG, 1X/DAY
     Route: 048
     Dates: start: 20181113, end: 2019

REACTIONS (7)
  - Rash [Unknown]
  - Product substitution issue [Recovered/Resolved]
  - Malaise [Not Recovered/Not Resolved]
  - Chest pain [Not Recovered/Not Resolved]
  - Weight decreased [Not Recovered/Not Resolved]
  - Pruritus [Recovered/Resolved]
  - Alopecia [Not Recovered/Not Resolved]

NARRATIVE: CASE EVENT DATE: 201811
